FAERS Safety Report 16421761 (Version 2)
Quarter: 2019Q3

REPORT INFORMATION
  Report Type: Spontaneous
  Country: DE (occurrence: DE)
  Receive Date: 20190612
  Receipt Date: 20190724
  Transmission Date: 20191004
  Serious: Yes (Life-Threatening, Hospitalization, Other)
  Sender: FDA-Public Use
  Company Number: DE-PFIZER INC-2019219809

PATIENT
  Age: 82 Year
  Sex: Male
  Weight: 80 kg

DRUGS (12)
  1. SUTENT [Suspect]
     Active Substance: SUNITINIB MALATE
     Indication: METASTATIC RENAL CELL CARCINOMA
     Dosage: 50 MG, CYCLIC (2/1 SCHEME)
     Dates: start: 20190315, end: 20190520
  2. MOVICOL [Concomitant]
     Active Substance: POLYETHYLENE GLYCOL 3350\POTASSIUM CHLORIDE\SODIUM BICARBONATE\SODIUM CHLORIDE
     Dosage: UNK, AS NEEDED
  3. RASILEZ [Concomitant]
     Active Substance: ALISKIREN
     Dosage: UNK MG, 1X/DAY STRENGTH 300/25 MG
     Route: 048
  4. AMLODIPIN [Concomitant]
     Active Substance: AMLODIPINE BESYLATE
     Dosage: 5 MG, 2X/DAY (1-0-1)
     Route: 048
  5. HYDROMORPHONE [Concomitant]
     Active Substance: HYDROMORPHONE
     Dosage: 8 MG, 2X/DAY (1-0-1)
     Route: 048
  6. METOPROLOL. [Concomitant]
     Active Substance: METOPROLOL
     Dosage: 50 MG, 1X/DAY 1-0-0
     Route: 048
  7. PANTOZOL [Concomitant]
     Active Substance: PANTOPRAZOLE SODIUM
     Dosage: 40 MG, 1X/DAY (0-0-1)
  8. PIPAMPERON [Concomitant]
     Active Substance: PIPAMPERONE HYDROCHLORIDE
     Dosage: 40 MG, 1X/DAY 0-0-1
     Route: 048
  9. HYDROMORFON [Concomitant]
     Active Substance: HYDROMORPHONE HYDROCHLORIDE
     Dosage: 8 MG, 2X/DAY (1-0-1)
     Route: 048
  10. RESILIENT [Concomitant]
     Active Substance: LITHIUM SULFATE
     Dosage: UNK, 1X/DAY (300 MG/25 MG, 1-0-0)
  11. PALLADON [Concomitant]
     Active Substance: HYDROMORPHONE
     Dosage: 1.3 MG, AS NEEDED
     Route: 048
  12. NOVALGIN (METAMIZOLE SODIUM) [Concomitant]
     Active Substance: METAMIZOLE SODIUM
     Dosage: 0.5 UNKNOWN UNIT 4X/DAY (1-1-1-1)
     Route: 048

REACTIONS (4)
  - Thrombocytopenia [Recovered/Resolved]
  - Mouth haemorrhage [Not Recovered/Not Resolved]
  - Haemoglobin decreased [Unknown]
  - Epistaxis [Not Recovered/Not Resolved]

NARRATIVE: CASE EVENT DATE: 20190430
